FAERS Safety Report 16425489 (Version 1)
Quarter: 2019Q2

REPORT INFORMATION
  Report Type: Spontaneous
  Country: US (occurrence: US)
  Receive Date: 20190613
  Receipt Date: 20190613
  Transmission Date: 20190711
  Serious: No
  Sender: FDA-Public Use
  Company Number: US-PFIZER INC-2019245201

PATIENT
  Sex: Female

DRUGS (2)
  1. LYRICA [Suspect]
     Active Substance: PREGABALIN
     Dosage: 225 MG, DAILY, (75MG IN THE MORNING AND 150 MG AT NIGHT)
  2. LYRICA [Suspect]
     Active Substance: PREGABALIN
     Indication: NEURALGIA
     Dosage: 75 MG, 2X/DAY

REACTIONS (5)
  - Fatigue [Unknown]
  - Somnolence [Unknown]
  - Asthenia [Unknown]
  - Headache [Unknown]
  - Cough [Unknown]
